FAERS Safety Report 8060698-6 (Version None)
Quarter: 2012Q1

REPORT INFORMATION
  Report Type: 
  Country: None (occurrence: None)
  Receive Date: 20120120
  Receipt Date: 20120113
  Transmission Date: 20120608
  Serious: Yes (Other)
  Sender: FDA-Public Use
  Company Number: US-US-EMD SERONO, INC.-7096664

PATIENT
  Sex: Female
  Weight: 71 kg

DRUGS (12)
  1. BUTALBITAL [Concomitant]
     Indication: HEADACHE
  2. HYDROCHLOROTHIAZIDE [Concomitant]
  3. REBIF [Suspect]
     Indication: MULTIPLE SCLEROSIS
     Route: 058
     Dates: start: 20070423, end: 20110922
  4. FENOFIBRATE [Concomitant]
  5. GLYBURIDE [Concomitant]
  6. LORAZEPAM [Concomitant]
  7. NITROGLYCERIN [Concomitant]
  8. AMITRIPTYLINE HCL [Concomitant]
  9. METFORMIN HCL [Concomitant]
  10. BYSTOLIC [Concomitant]
  11. HYDROXYZINE [Concomitant]
  12. SYNTHROID [Concomitant]

REACTIONS (5)
  - HEPATIC LESION [None]
  - HEPATITIS A [None]
  - HEPATIC ENZYME INCREASED [None]
  - HEPATIC STEATOSIS [None]
  - GALLBLADDER DISORDER [None]
